FAERS Safety Report 5079902-1 (Version None)
Quarter: 2006Q3

REPORT INFORMATION
  Report Type: 
  Country: None (occurrence: None)
  Receive Date: 20060815
  Receipt Date: 20051015
  Transmission Date: 20061208
  Serious: Yes (Death, Other)
  Sender: FDA-Public Use
  Company Number: US-AMGEN-KDL154590

PATIENT
  Sex: Female

DRUGS (5)
  1. ENBREL [Suspect]
     Indication: RHEUMATOID ARTHRITIS
     Route: 058
     Dates: start: 20021201, end: 20051001
  2. PROCRIT [Suspect]
     Indication: ANAEMIA OF MALIGNANT DISEASE
     Dates: start: 20050101
  3. SYNTHROID [Concomitant]
  4. LASIX [Concomitant]
  5. NEXIUM [Concomitant]

REACTIONS (2)
  - ANAEMIA [None]
  - NON-HODGKIN'S LYMPHOMA [None]
